FAERS Safety Report 14999725 (Version 1)
Quarter: 2018Q2

REPORT INFORMATION
  Report Type: Other
  Country: IR (occurrence: IR)
  Receive Date: 20180612
  Receipt Date: 20180612
  Transmission Date: 20180711
  Serious: Yes (Death)
  Sender: FDA-Public Use
  Company Number: IR-ORCHID HEALTHCARE-2049277

PATIENT
  Age: 25 Year
  Sex: Male

DRUGS (1)
  1. AMLODIPINE BESYLATE. [Suspect]
     Active Substance: AMLODIPINE BESYLATE
     Route: 048

REACTIONS (14)
  - Blood calcium increased [Unknown]
  - Blood creatinine increased [Unknown]
  - Respiratory alkalosis [Unknown]
  - Anuria [Unknown]
  - Pulmonary oedema [Unknown]
  - Intentional overdose [Fatal]
  - Nausea [Unknown]
  - Disorientation [Unknown]
  - Multiple organ dysfunction syndrome [Fatal]
  - Urine output decreased [Unknown]
  - Hypotension [Unknown]
  - Abdominal discomfort [Unknown]
  - Loss of consciousness [Unknown]
  - Nodal rhythm [Unknown]
